FAERS Safety Report 9175477 (Version 1)
Quarter: 2013Q1

REPORT INFORMATION
  Report Type: Spontaneous
  Country: US (occurrence: US)
  Receive Date: 20130320
  Receipt Date: 20130320
  Transmission Date: 20140127
  Serious: No
  Sender: FDA-Public Use
  Company Number: US-PFIZER INC-2013090925

PATIENT
  Age: 51 Year
  Sex: Male
  Weight: 63.49 kg

DRUGS (6)
  1. CHANTIX [Suspect]
     Indication: SMOKING CESSATION THERAPY
     Dosage: 0.5 MG, UNK
     Route: 048
  2. CHANTIX [Suspect]
     Dosage: UNK
     Route: 048
  3. HYDROCODONE [Concomitant]
     Dosage: 7.5 MG, UNK
  4. LYRICA [Concomitant]
     Dosage: 150 MG, UNK
  5. LEVETIRACETAM [Concomitant]
     Indication: HEAD INJURY
     Dosage: 1000 MG, UNK
  6. LEVETIRACETAM [Concomitant]
     Indication: PROPHYLAXIS

REACTIONS (3)
  - Abnormal dreams [Unknown]
  - Restlessness [Unknown]
  - Terminal insomnia [Unknown]
